FAERS Safety Report 19319288 (Version 1)
Quarter: 2021Q2

REPORT INFORMATION
  Report Type: Spontaneous
  Country: JP (occurrence: JP)
  Receive Date: 20210527
  Receipt Date: 20210527
  Transmission Date: 20210717
  Serious: Yes (Other)
  Sender: FDA-Public Use
  Company Number: JP-PFIZER INC-2021558889

PATIENT
  Age: 86 Year

DRUGS (1)
  1. SELARA [Suspect]
     Active Substance: EPLERENONE
     Indication: CARDIAC FAILURE CHRONIC
     Dosage: 25 MG, DAILY
     Route: 048

REACTIONS (2)
  - Infection [Unknown]
  - Renal impairment [Unknown]
